FAERS Safety Report 12329220 (Version 1)
Quarter: 2016Q2

REPORT INFORMATION
  Report Type: Spontaneous
  Country: US (occurrence: US)
  Receive Date: 20160503
  Receipt Date: 20160503
  Transmission Date: 20160815
  Serious: No
  Sender: FDA-Public Use
  Company Number: US-TEVA-655929USA

PATIENT
  Age: 64 Year
  Sex: Female
  Weight: 81.72 kg

DRUGS (7)
  1. CELEXA [Concomitant]
     Active Substance: CITALOPRAM HYDROBROMIDE
     Indication: DEPRESSION
  2. LEVOTHYROXINE. [Concomitant]
     Active Substance: LEVOTHYROXINE
     Indication: HYPOTHYROIDISM
  3. FLOVENT [Concomitant]
     Active Substance: FLUTICASONE PROPIONATE
     Indication: ASTHMA
  4. FENTORA [Suspect]
     Active Substance: FENTANYL CITRATE
     Indication: CANCER PAIN
     Route: 065
     Dates: end: 2016
  5. ROBAXIN [Concomitant]
     Active Substance: METHOCARBAMOL
     Indication: MUSCLE RELAXANT THERAPY
  6. ALBUTEROL. [Concomitant]
     Active Substance: ALBUTEROL
     Indication: ASTHMA
  7. METHADONE [Concomitant]
     Active Substance: METHADONE HYDROCHLORIDE
     Indication: PAIN

REACTIONS (3)
  - Drug withdrawal syndrome [Not Recovered/Not Resolved]
  - Pain [Not Recovered/Not Resolved]
  - Malaise [Not Recovered/Not Resolved]

NARRATIVE: CASE EVENT DATE: 20160425
